FAERS Safety Report 7568917-7 (Version None)
Quarter: 2011Q2

REPORT INFORMATION
  Report Type: 
  Country: None (occurrence: None)
  Receive Date: 20110623
  Receipt Date: 20110616
  Transmission Date: 20111010
  Serious: Yes (Other)
  Sender: FDA-Public Use
  Company Number: GB-TEVA-287135ISR

PATIENT
  Sex: Male

DRUGS (2)
  1. NOLVADEX [Suspect]
     Indication: PROSTATE CANCER
     Dosage: 40 MILLIGRAM;
     Route: 048
  2. BICALUTAMIDE [Suspect]
     Indication: PROSTATE CANCER
     Dosage: 150 MILLIGRAM;
     Route: 048

REACTIONS (1)
  - OSTEOPOROSIS [None]
